FAERS Safety Report 6752421-X (Version None)
Quarter: 2010Q2

REPORT INFORMATION
  Report Type: 
  Country: None (occurrence: None)
  Receive Date: 20100528
  Receipt Date: 20100426
  Transmission Date: 20101027
  Serious: Yes (Hospitalization)
  Sender: FDA-Public Use
  Company Number: 2010-003

PATIENT
  Age: 37 Year
  Sex: Male

DRUGS (1)
  1. AXE ANTIPERSPIRANT DEODORANT DARK TEMPTATION [Suspect]
     Indication: HYPERHIDROSIS
     Dosage: 2 USES UNDER ARMS
     Dates: start: 20090701, end: 20090702

REACTIONS (3)
  - APPLICATION SITE RASH [None]
  - DRUG HYPERSENSITIVITY [None]
  - FURUNCLE [None]
